FAERS Safety Report 10644857 (Version 2)
Quarter: 2015Q1

REPORT INFORMATION
  Report Type: Spontaneous
  Country: PL (occurrence: PL)
  Receive Date: 20141211
  Receipt Date: 20150210
  Transmission Date: 20150720
  Serious: Yes (Life-Threatening, Hospitalization, Other)
  Sender: FDA-Public Use
  Company Number: PL-ROCHE-1504481

PATIENT
  Age: 44 Year
  Sex: Male
  Weight: 80 kg

DRUGS (2)
  1. COPEGUS [Suspect]
     Active Substance: RIBAVIRIN
     Indication: CHRONIC HEPATITIS C
     Route: 048
     Dates: start: 20140919, end: 20141123
  2. PEGASYS [Suspect]
     Active Substance: PEGINTERFERON ALFA-2A
     Indication: CHRONIC HEPATITIS C
     Route: 058
     Dates: start: 20140919, end: 20141123

REACTIONS (9)
  - Streptococcal sepsis [Recovering/Resolving]
  - Arthritis [Unknown]
  - Respiratory failure [Unknown]
  - Pseudomembranous colitis [Unknown]
  - Pleurisy [Unknown]
  - Joint abscess [Unknown]
  - Pneumonitis [Unknown]
  - Lung abscess [Unknown]
  - Joint effusion [Unknown]

NARRATIVE: CASE EVENT DATE: 20141119
